FAERS Safety Report 6438559-5 (Version None)
Quarter: 2009Q4

REPORT INFORMATION
  Report Type: 
  Country: None (occurrence: None)
  Receive Date: 20091112
  Receipt Date: 20090806
  Transmission Date: 20100525
  Serious: No
  Sender: FDA-Public Use
  Company Number: US-ALLERGAN-0910853US

PATIENT
  Age: 76 Year
  Sex: Female

DRUGS (3)
  1. COMBIGAN [Suspect]
     Indication: INTRAOCULAR PRESSURE INCREASED
     Dosage: UNK, BID
     Route: 047
  2. LUMIGAN [Concomitant]
  3. ZESTORETIC [Concomitant]
     Indication: HYPERTENSION
     Dosage: 25/20MG, QD
     Route: 048

REACTIONS (1)
  - BLOOD PRESSURE DECREASED [None]
